FAERS Safety Report 10401669 (Version 1)
Quarter: 2014Q3

REPORT INFORMATION
  Report Type: Spontaneous
  Country: US (occurrence: US)
  Receive Date: 20140822
  Receipt Date: 20140822
  Transmission Date: 20150326
  Serious: Yes (Hospitalization)
  Sender: FDA-Public Use
  Company Number: US-JNJFOC-20140815518

PATIENT
  Age: 55 Year
  Sex: Female
  Weight: 56.7 kg

DRUGS (5)
  1. RESTORIL [Concomitant]
     Active Substance: TEMAZEPAM
     Indication: SLEEP DISORDER
     Dosage: 10/325/TABLET/ AS NEEDED
     Route: 048
  2. METOPROLOL [Concomitant]
     Active Substance: METOPROLOL
     Indication: HYPERTENSION
     Dosage: 10/325/TABLET/ AS NEEDED
     Route: 048
     Dates: start: 2013
  3. DURAGESIC [Suspect]
     Active Substance: FENTANYL
     Indication: SARCOIDOSIS
     Route: 062
  4. LORTAB [Concomitant]
     Active Substance: ACETAMINOPHEN\HYDROCODONE BITARTRATE
     Indication: BREAKTHROUGH PAIN
     Dosage: 10/325/TABLET/ AS NEEDED
     Route: 048
  5. DIAZEPAM. [Concomitant]
     Active Substance: DIAZEPAM
     Indication: ANXIETY
     Dosage: 10/325/TABLET/ AS NEEDED
     Route: 048

REACTIONS (3)
  - Body temperature increased [Recovered/Resolved]
  - Malaise [Recovered/Resolved]
  - Cerebrovascular accident [Recovered/Resolved]

NARRATIVE: CASE EVENT DATE: 201311
